FAERS Safety Report 9311416 (Version 1)
Quarter: 2013Q2

REPORT INFORMATION
  Report Type: Spontaneous
  Country: US (occurrence: US)
  Receive Date: 20130528
  Receipt Date: 20130528
  Transmission Date: 20140414
  Serious: Yes (Hospitalization)
  Sender: FDA-Public Use
  Company Number: 2013SP001487

PATIENT
  Sex: Female

DRUGS (2)
  1. LATUDA [Suspect]
     Indication: POST-TRAUMATIC STRESS DISORDER
     Route: 048
  2. VIIBRYD [Suspect]
     Indication: PRODUCT USED FOR UNKNOWN INDICATION

REACTIONS (2)
  - Delirium [Recovered/Resolved]
  - Hallucination, visual [Recovered/Resolved]
